FAERS Safety Report 18294112 (Version 1)
Quarter: 2020Q3

REPORT INFORMATION
  Report Type: Spontaneous
  Country: GR (occurrence: GR)
  Receive Date: 20200921
  Receipt Date: 20200921
  Transmission Date: 20201103
  Serious: Yes (Hospitalization)
  Sender: FDA-Public Use
  Company Number: GR-PFIZER INC-2020362477

PATIENT
  Age: 62 Year
  Sex: Female

DRUGS (2)
  1. METHOTREXATE SODIUM. [Suspect]
     Active Substance: METHOTREXATE SODIUM
     Dosage: 1 UNK, WEEKLY
     Route: 065
     Dates: start: 201902
  2. BENEPALI [Suspect]
     Active Substance: ETANERCEPT
     Indication: RHEUMATOID ARTHRITIS
     Dosage: 50 MG FREQ:2 WK;
     Route: 058
     Dates: start: 20190805

REACTIONS (2)
  - Gallbladder disorder [Not Recovered/Not Resolved]
  - Pancreatitis [Not Recovered/Not Resolved]
